FAERS Safety Report 11275370 (Version 1)
Quarter: 2015Q2

REPORT INFORMATION
  Report Type: Spontaneous
  Country: US (occurrence: None)
  Receive Date: 20150625
  Receipt Date: 20150625
  Transmission Date: 20150821
  Serious: No
  Sender: FDA-Public Use
  Company Number: A-NJ2015-116650

PATIENT
  Age: 53 Year
  Sex: Female

DRUGS (12)
  1. VITAMIN D (ERGOCALCIFEROL) [Concomitant]
     Active Substance: ERGOCALCIFEROL
  2. DEMADEX (TORASEMIDE) [Concomitant]
  3. ASPIRIN (ACETYLSALICYLIC ACID) [Concomitant]
     Active Substance: ASPIRIN
  4. BIOTIN [Concomitant]
     Active Substance: BIOTIN
  5. XANAX [Concomitant]
     Active Substance: ALPRAZOLAM
  6. MULTIVITAMIN (VITAMINS NOS) [Concomitant]
     Active Substance: VITAMINS
  7. CALCIUM (CALCIUM GLUCONATE) [Concomitant]
  8. ZOCOR [Concomitant]
     Active Substance: SIMVASTATIN
  9. POTASSIUM [Concomitant]
     Active Substance: POTASSIUM
  10. RESTORIL [Concomitant]
     Active Substance: TEMAZEPAM
  11. TOPROL XL [Concomitant]
     Active Substance: METOPROLOL SUCCINATE
  12. OPSUMIT [Suspect]
     Active Substance: MACITENTAN
     Indication: PULMONARY ARTERIAL HYPERTENSION
     Route: 048
     Dates: start: 20140626

REACTIONS (1)
  - Blood triglycerides increased [None]

NARRATIVE: CASE EVENT DATE: 20150404
